FAERS Safety Report 8831453 (Version 1)
Quarter: 2012Q4

REPORT INFORMATION
  Report Type: 
  Country: US (occurrence: US)
  Receive Date: 20121009
  Receipt Date: 20121009
  Transmission Date: 20130627
  Serious: Yes (Other)
  Sender: FDA-Public Use
  Company Number: US-ROCHE-1131122

PATIENT
  Sex: Female
  Weight: 94.89 kg

DRUGS (10)
  1. RITUXAN [Suspect]
     Indication: B-CELL LYMPHOMA
     Route: 065
  2. RITUXAN [Suspect]
     Indication: LYMPHOMA
  3. LORTAB [Concomitant]
     Route: 065
  4. ATENOLOL [Concomitant]
  5. PRINIVIL [Concomitant]
  6. OS-CAL [Concomitant]
  7. VIOXX [Concomitant]
     Route: 048
  8. FUROSEMIDE [Concomitant]
  9. AMBIEN [Concomitant]
     Route: 065
  10. QUININE SULFATE [Concomitant]

REACTIONS (16)
  - Hepatitis C [Unknown]
  - Radiculopathy [Unknown]
  - Salivary gland neoplasm [Unknown]
  - Arthritis [Unknown]
  - Chills [Unknown]
  - Gastrooesophageal reflux disease [Unknown]
  - Cellulitis [Unknown]
  - Insomnia [Unknown]
  - Nausea [Unknown]
  - Vomiting [Unknown]
  - Arthralgia [Unknown]
  - Fatigue [Unknown]
  - Tinnitus [Unknown]
  - Hypertension [Unknown]
  - Night sweats [Unknown]
  - Prothrombin time prolonged [Unknown]
